FAERS Safety Report 7532868-4 (Version None)
Quarter: 2011Q2

REPORT INFORMATION
  Report Type: 
  Country: None (occurrence: None)
  Receive Date: 20110608
  Receipt Date: 20110601
  Transmission Date: 20111010
  Serious: Yes (Disabling)
  Sender: FDA-Public Use
  Company Number: GB-PFIZER INC-2011119312

PATIENT
  Age: 62 Year
  Sex: Female
  Weight: 68.18 kg

DRUGS (12)
  1. CLOBETASOL PROPIONATE [Concomitant]
     Dosage: UNK
     Dates: start: 20110519
  2. HYDROCORTISONE [Concomitant]
     Dosage: UNK
     Dates: start: 20110330
  3. DICLOFENAC SODIUM [Concomitant]
     Dosage: UNK
     Dates: start: 20110224, end: 20110324
  4. DIAZEPAM [Concomitant]
     Dosage: UNK
     Dates: start: 20110224, end: 20110225
  5. LEVOTHYROXINE [Concomitant]
     Dosage: UNK
     Dates: start: 20110214
  6. CAPSAICIN [Concomitant]
     Dosage: UNK
     Dates: start: 20110506, end: 20110516
  7. PREGABALIN [Suspect]
     Dosage: UNK
     Dates: start: 20110519
  8. CYCLIZINE [Concomitant]
     Dosage: UNK
     Dates: start: 20110519
  9. OXYBUTYNIN [Concomitant]
     Dosage: UNK
     Dates: start: 20110224, end: 20110519
  10. PARACETAMOL [Concomitant]
     Dosage: UNK
     Dates: start: 20110224
  11. FAMOTIDINE [Concomitant]
     Dosage: UNK
     Dates: start: 20110201
  12. ISPAGHULA HUSK [Concomitant]
     Dosage: UNK
     Dates: start: 20110214, end: 20110316

REACTIONS (4)
  - HYPERREFLEXIA [None]
  - SYNCOPE [None]
  - NYSTAGMUS [None]
  - DIZZINESS POSTURAL [None]
